FAERS Safety Report 9632221 (Version 1)
Quarter: 2013Q4

REPORT INFORMATION
  Report Type: Spontaneous
  Country: US (occurrence: US)
  Receive Date: 20131018
  Receipt Date: 20131018
  Transmission Date: 20140711
  Serious: Yes (Other)
  Sender: FDA-Public Use
  Company Number: ALCN2013US005172

PATIENT
  Sex: Male
  Weight: 65.76 kg

DRUGS (3)
  1. TIMOLOL [Suspect]
     Dosage: UNK
     Route: 047
     Dates: start: 2012, end: 20131007
  2. BRIMONIDINE [Suspect]
     Dosage: UNK
     Route: 047
  3. LATANOPROST [Suspect]
     Route: 047

REACTIONS (5)
  - Heart rate decreased [Recovering/Resolving]
  - Abdominal discomfort [Recovered/Resolved]
  - Restlessness [Recovering/Resolving]
  - Psoriasis [Recovering/Resolving]
  - Condition aggravated [Recovering/Resolving]
